FAERS Safety Report 13334173 (Version 2)
Quarter: 2017Q1

REPORT INFORMATION
  Report Type: Spontaneous
  Country: AU (occurrence: AU)
  Receive Date: 20170314
  Receipt Date: 20170322
  Transmission Date: 20170428
  Serious: Yes (Hospitalization)
  Sender: FDA-Public Use
  Company Number: AU-ACTELION-A-CH2017-149017

PATIENT
  Age: 64 Year
  Sex: Female

DRUGS (3)
  1. TADALAFIL [Suspect]
     Active Substance: TADALAFIL
     Indication: SYSTEMIC SCLERODERMA
     Dosage: 40 MG, QD
     Route: 048
     Dates: start: 20150901
  2. OPSUMIT [Suspect]
     Active Substance: MACITENTAN
     Indication: PULMONARY HYPERTENSION
     Dosage: 10 MG, QD
     Route: 048
     Dates: start: 20150316
  3. VELETRI [Suspect]
     Active Substance: EPOPROSTENOL
     Indication: PULMONARY HYPERTENSION
     Dosage: UNK
     Route: 042

REACTIONS (6)
  - Disease progression [Not Recovered/Not Resolved]
  - Pulmonary arterial hypertension [Not Recovered/Not Resolved]
  - Oxygen saturation decreased [Unknown]
  - Syncope [Recovered/Resolved]
  - Gastroenteritis [Unknown]
  - Dehydration [Unknown]

NARRATIVE: CASE EVENT DATE: 20161124
